FAERS Safety Report 18119014 (Version 2)
Quarter: 2021Q2

REPORT INFORMATION
  Report Type: Spontaneous
  Country: HK (occurrence: HK)
  Receive Date: 20200806
  Receipt Date: 20210628
  Transmission Date: 20210717
  Serious: Yes (Life-Threatening, Hospitalization)
  Sender: FDA-Public Use
  Company Number: HK-TEVA-2020-HK-1809888

PATIENT
  Age: 3 Year
  Sex: Female

DRUGS (5)
  1. CISATRACURIUM. [Concomitant]
     Active Substance: CISATRACURIUM
     Indication: MUSCLE RELAXANT THERAPY
     Route: 065
  2. SALBUTAMOL [Suspect]
     Active Substance: ALBUTEROL
     Indication: CHILDHOOD ASTHMA
     Dosage: CONTINUOUS NEBULISATION
     Route: 055
  3. AMOXICILLIN/CLAVULANIC ACID [Suspect]
     Active Substance: AMOXICILLIN\CLAVULANIC ACID
     Indication: CHILDHOOD ASTHMA
     Dosage: 30MG/KG
     Route: 042
  4. METHYLPREDNISOLONE. [Suspect]
     Active Substance: METHYLPREDNISOLONE
     Indication: CHILDHOOD ASTHMA
     Route: 042
  5. MAGNESIUM SULFATE. [Suspect]
     Active Substance: MAGNESIUM SULFATE
     Indication: CHILDHOOD ASTHMA
     Route: 041

REACTIONS (1)
  - Drug ineffective [Unknown]
